FAERS Safety Report 7241986-X (Version None)
Quarter: 2011Q1

REPORT INFORMATION
  Report Type: 
  Country: None (occurrence: None)
  Receive Date: 20110124
  Receipt Date: 20110118
  Transmission Date: 20110831
  Serious: No
  Sender: FDA-Public Use
  Company Number: US-CEPHALON-2011000259

PATIENT
  Sex: Female

DRUGS (2)
  1. DURAGESIC-100 [Concomitant]
     Route: 062
  2. FENTORA [Suspect]
     Indication: ABDOMINAL PAIN UPPER
     Route: 002

REACTIONS (1)
  - CIRCUMSTANCE OR INFORMATION CAPABLE OF LEADING TO MEDICATION ERROR [None]
